FAERS Safety Report 13907120 (Version 2)
Quarter: 2017Q4

REPORT INFORMATION
  Report Type: Spontaneous
  Country: US (occurrence: US)
  Receive Date: 20170825
  Receipt Date: 20171012
  Transmission Date: 20180320
  Serious: No
  Sender: FDA-Public Use
  Company Number: US-009507513-1708USA004331

PATIENT
  Age: 37 Year
  Sex: Male

DRUGS (3)
  1. FEXOFENADINE HYDROCHLORIDE. [Concomitant]
     Active Substance: FEXOFENADINE HYDROCHLORIDE
  2. INTRON A [Suspect]
     Active Substance: INTERFERON ALFA-2B
     Indication: THROMBOCYTOPENIA
     Dosage: STRENGHT: 10 MU,DOSE: 3 MU, TIW
     Route: 058
     Dates: start: 20170323
  3. HYDROXYUREA. [Concomitant]
     Active Substance: HYDROXYUREA

REACTIONS (2)
  - Product use in unapproved indication [Unknown]
  - Drug ineffective [Unknown]

NARRATIVE: CASE EVENT DATE: 20170323
